FAERS Safety Report 22023091 (Version 1)
Quarter: 2023Q1

REPORT INFORMATION
  Report Type: Spontaneous
  Country: US (occurrence: US)
  Receive Date: 20230222
  Receipt Date: 20230222
  Transmission Date: 20230417
  Serious: Yes (Life-Threatening, Hospitalization, Other)
  Sender: FDA-Public Use
  Company Number: US-BRACCO-2022US03505

PATIENT
  Age: 57 Year
  Sex: Female

DRUGS (1)
  1. ISOVUE 370 [Suspect]
     Active Substance: IOPAMIDOL
     Indication: Angiogram
     Dosage: 50 ML, SINGLE
     Route: 042
     Dates: start: 20220830, end: 20220830

REACTIONS (2)
  - Cardiac arrest [Unknown]
  - Seizure [Unknown]

NARRATIVE: CASE EVENT DATE: 20220830
